FAERS Safety Report 23696455 (Version 1)
Quarter: 2024Q2

REPORT INFORMATION
  Report Type: Spontaneous
  Country: BE (occurrence: BE)
  Receive Date: 20240402
  Receipt Date: 20240402
  Transmission Date: 20240716
  Serious: Yes (Death, Life-Threatening, Hospitalization, Other)
  Sender: FDA-Public Use
  Company Number: BE-MACLEODS PHARMACEUTICALS US LTD-MAC2024046659

PATIENT

DRUGS (1)
  1. VENLAFAXINE [Suspect]
     Active Substance: VENLAFAXINE HYDROCHLORIDE
     Indication: Product used for unknown indication
     Dosage: 150 MILLIGRAM, SINGLE, 90 TABLET
     Route: 065

REACTIONS (12)
  - Cardiac arrest [Fatal]
  - Cardiac failure acute [Unknown]
  - Hallucination, visual [Unknown]
  - Atrial fibrillation [Unknown]
  - Status epilepticus [Unknown]
  - Anuria [Unknown]
  - Hypoglycaemia [Unknown]
  - Confusional state [Unknown]
  - Agitation [Unknown]
  - Tremor [Unknown]
  - Hypotension [Unknown]
  - Overdose [Fatal]
